FAERS Safety Report 5973732-1 (Version None)
Quarter: 2008Q4

REPORT INFORMATION
  Report Type: 
  Country: None (occurrence: None)
  Receive Date: 20081201
  Receipt Date: 20081127
  Transmission Date: 20090506
  Serious: Yes (Life-Threatening)
  Sender: FDA-Public Use
  Company Number: NZ-B.I. PHARMACEUTICALS,INC./RIDGEFIELD-2008-DE-07310DE

PATIENT
  Sex: Male

DRUGS (2)
  1. COMBIVENT [Suspect]
  2. ALBUTEROL SULFATE [Concomitant]

REACTIONS (2)
  - RESPIRATORY FAILURE [None]
  - TOXIC EPIDERMAL NECROLYSIS [None]
